FAERS Safety Report 18969376 (Version 16)
Quarter: 2024Q4

REPORT INFORMATION
  Report Type: Spontaneous
  Country: CA (occurrence: CA)
  Receive Date: 20210304
  Receipt Date: 20241029
  Transmission Date: 20250115
  Serious: Yes (Life-Threatening, Hospitalization, Other)
  Sender: BOEHRINGER INGELHEIM
  Company Number: CA-BOEHRINGERINGELHEIM-2021-BI-085933

PATIENT
  Age: 72 Year
  Sex: Male

DRUGS (139)
  1. FLOMAX [Suspect]
     Active Substance: TAMSULOSIN HYDROCHLORIDE
     Indication: Product used for unknown indication
  2. FLOMAX [Suspect]
     Active Substance: TAMSULOSIN HYDROCHLORIDE
  3. FLOMAX [Suspect]
     Active Substance: TAMSULOSIN HYDROCHLORIDE
     Dosage: 1.0 DOSAGE FORMS
  4. SPIRIVA [Suspect]
     Active Substance: TIOTROPIUM BROMIDE MONOHYDRATE
     Indication: Asthma
     Dosage: 2 DOSAGE FORM
  5. SPIRIVA [Suspect]
     Active Substance: TIOTROPIUM BROMIDE MONOHYDRATE
  6. METFORMIN [Suspect]
     Active Substance: METFORMIN HYDROCHLORIDE
     Indication: Product used for unknown indication
  7. DILTIAZEM [Suspect]
     Active Substance: DILTIAZEM
     Indication: Asthma
  8. DILTIAZEM [Suspect]
     Active Substance: DILTIAZEM
  9. DILTIAZEM [Suspect]
     Active Substance: DILTIAZEM
     Dosage: 1 EVERY 1 DAYS
  10. DILTIAZEM [Suspect]
     Active Substance: DILTIAZEM
  11. DILTIAZEM [Suspect]
     Active Substance: DILTIAZEM
     Route: 065
  12. DILTIAZEM [Suspect]
     Active Substance: DILTIAZEM
  13. DILTIAZEM [Suspect]
     Active Substance: DILTIAZEM
  14. DILTIAZEM [Suspect]
     Active Substance: DILTIAZEM
  15. DILTIAZEM [Suspect]
     Active Substance: DILTIAZEM
  16. DILTIAZEM [Suspect]
     Active Substance: DILTIAZEM
  17. DILTIAZEM [Suspect]
     Active Substance: DILTIAZEM
  18. ZENHALE [Suspect]
     Active Substance: FORMOTEROL FUMARATE\MOMETASONE FUROATE
     Indication: Asthma
     Dosage: 2 EVERY 1 DAYS  AEROSOL, METERED DOSE
  19. ZENHALE [Suspect]
     Active Substance: FORMOTEROL FUMARATE\MOMETASONE FUROATE
     Dosage: 2 DOSAGE FORM?AEROSOL, METERED DOSE
  20. ZENHALE [Suspect]
     Active Substance: FORMOTEROL FUMARATE\MOMETASONE FUROATE
  21. ZENHALE [Suspect]
     Active Substance: FORMOTEROL FUMARATE\MOMETASONE FUROATE
  22. ZENHALE [Suspect]
     Active Substance: FORMOTEROL FUMARATE\MOMETASONE FUROATE
     Dosage: 2 DOSAGE FORM?AEROSOL, METERED DOSE
  23. ZENHALE [Suspect]
     Active Substance: FORMOTEROL FUMARATE\MOMETASONE FUROATE
     Dosage: AEROSOL, METERED DOSE
  24. ZENHALE [Suspect]
     Active Substance: FORMOTEROL FUMARATE\MOMETASONE FUROATE
  25. ERGOCALCIFEROL [Suspect]
     Active Substance: ERGOCALCIFEROL
     Indication: Asthma
     Route: 065
  26. ERGOCALCIFEROL [Suspect]
     Active Substance: ERGOCALCIFEROL
  27. OMNARIS [Suspect]
     Active Substance: CICLESONIDE
     Indication: Asthma
     Dosage: SPRAY, METEREDDOSE
  28. ALBUTEROL [Suspect]
     Active Substance: ALBUTEROL
     Indication: Asthma
     Dosage: 2.0 DOSAGE FORMS
     Route: 065
  29. ALBUTEROL [Suspect]
     Active Substance: ALBUTEROL
     Indication: Eosinophilic granulomatosis with polyangiitis
  30. ESCITALOPRAM [Suspect]
     Active Substance: ESCITALOPRAM OXALATE
     Indication: Product used for unknown indication
     Route: 065
  31. ESCITALOPRAM [Suspect]
     Active Substance: ESCITALOPRAM OXALATE
     Route: 065
  32. ESCITALOPRAM [Suspect]
     Active Substance: ESCITALOPRAM OXALATE
  33. LEVOFLOXACIN HEMIHYDRATE [Suspect]
     Active Substance: LEVOFLOXACIN
     Indication: Product used for unknown indication
     Dosage: 3 DOSAGE FORM
  34. LEVOFLOXACIN HEMIHYDRATE [Suspect]
     Active Substance: LEVOFLOXACIN
     Dosage: 1 DOSAGE FORM
  35. LEVOFLOXACIN HEMIHYDRATE [Suspect]
     Active Substance: LEVOFLOXACIN
  36. CALCIUM CARBONATE [Suspect]
     Active Substance: CALCIUM CARBONATE
     Indication: Product used for unknown indication
     Dosage: 1 DOSAGE FORM
  37. CALCIUM CARBONATE [Suspect]
     Active Substance: CALCIUM CARBONATE
     Dosage: 2 DOSAGE FORM
  38. CALCIUM CARBONATE [Suspect]
     Active Substance: CALCIUM CARBONATE
  39. CALCIUM CARBONATE [Suspect]
     Active Substance: CALCIUM CARBONATE
  40. CALCIUM CARBONATE [Suspect]
     Active Substance: CALCIUM CARBONATE
  41. MOXIFLOXACIN [Suspect]
     Active Substance: MOXIFLOXACIN
     Indication: Product used for unknown indication
  42. ALBUTEROL [Suspect]
     Active Substance: ALBUTEROL
     Indication: Eosinophilic granulomatosis with polyangiitis
     Dosage: 2 DF
  43. ALBUTEROL [Suspect]
     Active Substance: ALBUTEROL
     Indication: Asthma
     Dosage: METERED-DOSE (AEROSOL)
  44. MAGNESIUM OXIDE [Suspect]
     Active Substance: MAGNESIUM OXIDE
     Indication: Product used for unknown indication
     Dosage: 2 DOSAGE FORM
  45. MAGNESIUM OXIDE [Suspect]
     Active Substance: MAGNESIUM OXIDE
     Dosage: 1 DOSAGE FORM
  46. MAGNESIUM OXIDE [Suspect]
     Active Substance: MAGNESIUM OXIDE
  47. MAGNESIUM OXIDE [Suspect]
     Active Substance: MAGNESIUM OXIDE
  48. PREDNISONE [Suspect]
     Active Substance: PREDNISONE
     Indication: Asthma
     Dosage: 1 EVERY 1 DAYS
  49. PREDNISONE [Suspect]
     Active Substance: PREDNISONE
     Dosage: 1 DOSAGE FORM
  50. PREDNISONE [Suspect]
     Active Substance: PREDNISONE
  51. PREDNISONE [Suspect]
     Active Substance: PREDNISONE
  52. PREDNISONE [Suspect]
     Active Substance: PREDNISONE
  53. VITAMIN D3 [Suspect]
     Active Substance: CHOLECALCIFEROL
     Indication: Product used for unknown indication
  54. VITAMIN D3 [Suspect]
     Active Substance: CHOLECALCIFEROL
  55. VITAMIN D3 [Suspect]
     Active Substance: CHOLECALCIFEROL
  56. DUTASTERIDE [Suspect]
     Active Substance: DUTASTERIDE
     Indication: Asthma
     Route: 048
  57. DUTASTERIDE [Suspect]
     Active Substance: DUTASTERIDE
  58. DUTASTERIDE [Suspect]
     Active Substance: DUTASTERIDE
  59. DUTASTERIDE [Suspect]
     Active Substance: DUTASTERIDE
  60. ADVAIR HFA [Suspect]
     Active Substance: FLUTICASONE PROPIONATE\SALMETEROL XINAFOATE
     Indication: Asthma
  61. CICLESONIDE [Suspect]
     Active Substance: CICLESONIDE
     Indication: Asthma
  62. CICLESONIDE [Suspect]
     Active Substance: CICLESONIDE
     Dosage: 1 EVERY 24 HOURS
  63. DOXAZOSIN [Suspect]
     Active Substance: DOXAZOSIN\DOXAZOSIN MESYLATE
     Indication: Product used for unknown indication
  64. DOXAZOSIN [Suspect]
     Active Substance: DOXAZOSIN\DOXAZOSIN MESYLATE
  65. AZATHIOPRINE SODIUM [Suspect]
     Active Substance: AZATHIOPRINE SODIUM
     Indication: Product used for unknown indication
     Route: 048
  66. AZATHIOPRINE SODIUM [Suspect]
     Active Substance: AZATHIOPRINE SODIUM
  67. AZATHIOPRINE SODIUM [Suspect]
     Active Substance: AZATHIOPRINE SODIUM
  68. AZATHIOPRINE SODIUM [Suspect]
     Active Substance: AZATHIOPRINE SODIUM
  69. ESCITALOPRAM OXALATE [Suspect]
     Active Substance: ESCITALOPRAM OXALATE
     Indication: Asthma
     Dosage: 2 DOSAGE FORM
  70. ESCITALOPRAM OXALATE [Suspect]
     Active Substance: ESCITALOPRAM OXALATE
     Route: 048
  71. ESCITALOPRAM OXALATE [Suspect]
     Active Substance: ESCITALOPRAM OXALATE
  72. MOXIFLOXACIN HYDROCHLORIDE [Suspect]
     Active Substance: MOXIFLOXACIN HYDROCHLORIDE
     Indication: Asthma
  73. DOXAZOSIN MESYLATE [Suspect]
     Active Substance: DOXAZOSIN MESYLATE
     Indication: Product used for unknown indication
  74. DOXAZOSIN MESYLATE [Suspect]
     Active Substance: DOXAZOSIN MESYLATE
     Indication: Asthma
  75. DOXAZOSIN MESYLATE [Suspect]
     Active Substance: DOXAZOSIN MESYLATE
  76. DOXAZOSIN MESYLATE [Suspect]
     Active Substance: DOXAZOSIN MESYLATE
  77. BUDESONIDE [Suspect]
     Active Substance: BUDESONIDE
     Indication: Asthma
     Route: 048
  78. LEVOFLOXACIN [Suspect]
     Active Substance: LEVOFLOXACIN
     Indication: Product used for unknown indication
     Route: 065
  79. LEVOFLOXACIN [Suspect]
     Active Substance: LEVOFLOXACIN
  80. CALCIUM\CHOLECALCIFEROL [Suspect]
     Active Substance: CALCIUM\CHOLECALCIFEROL
     Indication: Asthma
  81. ELIQUIS [Suspect]
     Active Substance: APIXABAN
     Indication: Asthma
  82. FLUTICASONE PROPIONATE\SALMETEROL XINAFOATE [Suspect]
     Active Substance: FLUTICASONE PROPIONATE\SALMETEROL XINAFOATE
     Indication: Asthma
     Dosage: 2 DF
  83. FLUTICASONE PROPIONATE\SALMETEROL XINAFOATE [Suspect]
     Active Substance: FLUTICASONE PROPIONATE\SALMETEROL XINAFOATE
     Dosage: 2 DF
     Route: 065
  84. CHOLECALCIFEROL [Suspect]
     Active Substance: CHOLECALCIFEROL
     Indication: Asthma
  85. CHOLECALCIFEROL [Suspect]
     Active Substance: CHOLECALCIFEROL
     Indication: Asthma
  86. LEVOFLOXACIN [Suspect]
     Active Substance: LEVOFLOXACIN
     Indication: Asthma
     Dosage: SOLUTION INHALATION
  87. APIXABAN [Suspect]
     Active Substance: APIXABAN
     Indication: Asthma
  88. CALCIUM CARBONATE\CHOLECALCIFEROL [Suspect]
     Active Substance: CALCIUM CARBONATE\CHOLECALCIFEROL
     Indication: Asthma
  89. CALCIUM CARBONATE\CHOLECALCIFEROL [Suspect]
     Active Substance: CALCIUM CARBONATE\CHOLECALCIFEROL
     Indication: Product used for unknown indication
  90. TIAZAC [Suspect]
     Active Substance: DILTIAZEM HYDROCHLORIDE
     Indication: Product used for unknown indication
     Route: 065
  91. FORMOTEROL FUMARATE\MOMETASONE FUROATE [Suspect]
     Active Substance: FORMOTEROL FUMARATE\MOMETASONE FUROATE
     Indication: Product used for unknown indication
     Dosage: 2 DOSAGE FORM
  92. FORMOTEROL FUMARATE\MOMETASONE FUROATE [Suspect]
     Active Substance: FORMOTEROL FUMARATE\MOMETASONE FUROATE
     Route: 065
  93. DILTIAZEM HYDROCHLORIDE [Suspect]
     Active Substance: DILTIAZEM HYDROCHLORIDE
     Indication: Product used for unknown indication
     Dosage: TABLET (EXTENDED-RELEASE)
     Route: 065
  94. ALBUTEROL SULFATE [Suspect]
     Active Substance: ALBUTEROL SULFATE
     Indication: Asthma
     Dosage: METERED-DOSE (AEROSOL)
  95. CALCIUM CARBONATE\ERGOCALCIFEROL [Suspect]
     Active Substance: CALCIUM CARBONATE\ERGOCALCIFEROL
     Indication: Product used for unknown indication
  96. CALCIUM CITRATE [Suspect]
     Active Substance: CALCIUM CITRATE
     Indication: Product used for unknown indication
  97. HOMEOPATHICS [Suspect]
     Active Substance: HOMEOPATHICS
     Indication: Product used for unknown indication
     Dosage: PELLET
  98. LEVOFLOXACIN [Suspect]
     Active Substance: LEVOFLOXACIN
     Indication: Product used for unknown indication
     Dosage: 1 EVERY 1 DAYS  SOLUTION INHALATION
  99. CALCIUM\VITAMIN D [Suspect]
     Active Substance: CALCIUM\VITAMIN D
     Indication: Product used for unknown indication
  100. ELIQUIS [Suspect]
     Active Substance: APIXABAN
     Indication: Product used for unknown indication
  101. VITAMIN D [Suspect]
     Active Substance: VITAMIN D NOS
     Indication: Product used for unknown indication
  102. CALCIUM LACTATE [Suspect]
     Active Substance: CALCIUM LACTATE
     Indication: Product used for unknown indication
  103. AMOXICILLIN\CLAVULANIC ACID [Suspect]
     Active Substance: AMOXICILLIN\CLAVULANIC ACID
     Indication: Product used for unknown indication
  104. FLUTICASONE PROPIONATE\SALMETEROL XINAFOATE [Suspect]
     Active Substance: FLUTICASONE PROPIONATE\SALMETEROL XINAFOATE
     Indication: Product used for unknown indication
  105. AMOXICILLIN [Suspect]
     Active Substance: AMOXICILLIN
     Indication: Product used for unknown indication
  106. FLUTICASONE [Suspect]
     Active Substance: FLUTICASONE
     Indication: Product used for unknown indication
  107. AMOXICILLIN AND CLAVULANATE POTASSIUM [Suspect]
     Active Substance: AMOXICILLIN\CLAVULANATE POTASSIUM
     Indication: Product used for unknown indication
  108. CALCIUM GLYCINATE [Suspect]
     Active Substance: CALCIUM GLYCINATE
     Indication: Product used for unknown indication
  109. ALENDRONATE SODIUM [Suspect]
     Active Substance: ALENDRONATE SODIUM
     Indication: Product used for unknown indication
     Dosage: 1 DOSAGE FORM
  110. ALENDRONATE SODIUM [Suspect]
     Active Substance: ALENDRONATE SODIUM
     Dosage: 1 DOSAGE FORM
  111. PANTOPRAZOLE SODIUM ANHYDROUS [Suspect]
     Active Substance: PANTOPRAZOLE SODIUM ANHYDROUS
     Indication: Product used for unknown indication
  112. AZITHROMYCIN [Suspect]
     Active Substance: AZITHROMYCIN
     Indication: Product used for unknown indication
     Dosage: 2 DOSAGE FORM
  113. AZITHROMYCIN [Suspect]
     Active Substance: AZITHROMYCIN
  114. AZITHROMYCIN [Suspect]
     Active Substance: AZITHROMYCIN
  115. AZITHROMYCIN DIHYDRATE [Suspect]
     Active Substance: AZITHROMYCIN DIHYDRATE
     Indication: Product used for unknown indication
     Dosage: 2 DOSAGE FORM
  116. AZITHROMYCIN DIHYDRATE [Suspect]
     Active Substance: AZITHROMYCIN DIHYDRATE
     Dosage: 1 DOSAGE FORM
  117. BETA GLUCAN [Suspect]
     Active Substance: BETA GLUCAN
     Indication: Product used for unknown indication
  118. BETAMETHASONE DIPROPIONATE [Suspect]
     Active Substance: BETAMETHASONE DIPROPIONATE
     Indication: Product used for unknown indication
  119. CANDESARTAN [Suspect]
     Active Substance: CANDESARTAN
     Indication: Product used for unknown indication
     Dosage: 1 DOSAGE FORM
  120. CANDESARTAN CILEXETIL [Suspect]
     Active Substance: CANDESARTAN CILEXETIL
     Indication: Product used for unknown indication
  121. CEFUROXIME [Suspect]
     Active Substance: CEFUROXIME
     Indication: Product used for unknown indication
  122. CEPHALEXIN [Suspect]
     Active Substance: CEPHALEXIN
     Indication: Product used for unknown indication
  123. DOMPERIDONE MALEATE [Suspect]
     Active Substance: DOMPERIDONE MALEATE
     Indication: Product used for unknown indication
  124. ROSUVASTATIN [Concomitant]
     Active Substance: ROSUVASTATIN
     Indication: Product used for unknown indication
     Route: 058
  125. ROSUVASTATIN [Concomitant]
     Active Substance: ROSUVASTATIN
     Indication: Asthma
     Route: 058
  126. ROSUVASTATIN [Concomitant]
     Active Substance: ROSUVASTATIN
  127. ROSUVASTATIN [Concomitant]
     Active Substance: ROSUVASTATIN
     Dosage: 1 EVERY 1 DAYS
     Route: 058
  128. ROSUVASTATIN [Concomitant]
     Active Substance: ROSUVASTATIN
     Route: 058
  129. ROSUVASTATIN [Concomitant]
     Active Substance: ROSUVASTATIN
  130. VITAMIN D [Concomitant]
     Active Substance: VITAMIN D NOS
     Indication: Product used for unknown indication
  131. ROSUVABETA-GLUCANSTATIN CALCIUM [Concomitant]
     Indication: Asthma
  132. ROSUVABETA-GLUCANSTATIN CALCIUM [Concomitant]
     Indication: Product used for unknown indication
  133. ROSUVABETA-GLUCANSTATIN CALCIUM [Concomitant]
     Route: 058
  134. ROSUVABETA-GLUCANSTATIN CALCIUM [Concomitant]
  135. ROSUVABETA-GLUCANSTATIN CALCIUM [Concomitant]
  136. ROSUVABETA-GLUCANSTATIN CALCIUM [Concomitant]
  137. ROSUVABETA-GLUCANSTATIN CALCIUM [Concomitant]
  138. ROSUVABETA-GLUCANSTATIN CALCIUM [Concomitant]
  139. ROSUVABETA-GLUCANSTATIN CALCIUM [Concomitant]

REACTIONS (36)
  - Sleep disorder due to a general medical condition [Unknown]
  - Dyspnoea [Unknown]
  - Wheezing [Unknown]
  - Pulmonary vasculitis [Unknown]
  - Pulmonary alveolar haemorrhage [Unknown]
  - Haemoptysis [Unknown]
  - Therapeutic product effect incomplete [Unknown]
  - Pain in extremity [Unknown]
  - Lung disorder [Unknown]
  - Asthma [Unknown]
  - Neuritis [Unknown]
  - Neurological symptom [Unknown]
  - Obstructive airways disorder [Unknown]
  - Condition aggravated [Unknown]
  - Pulmonary fibrosis [Unknown]
  - Respiratory symptom [Unknown]
  - Skin exfoliation [Unknown]
  - Vasculitis [Unknown]
  - Arteriosclerosis [Unknown]
  - Conjunctivitis allergic [Unknown]
  - Dust allergy [Unknown]
  - Full blood count abnormal [Unknown]
  - Hypoxia [Unknown]
  - Mite allergy [Unknown]
  - Mycotic allergy [Unknown]
  - Nodule [Unknown]
  - Normochromic normocytic anaemia [Unknown]
  - Productive cough [Unknown]
  - Pulmonary embolism [Unknown]
  - Spirometry abnormal [Unknown]
  - Thrombosis [Unknown]
  - Arteriosclerosis coronary artery [Unknown]
  - Loss of personal independence in daily activities [Unknown]
  - Hypothyroidism [Unknown]
  - Eosinophilic granulomatosis with polyangiitis [Unknown]
  - Anxiety [Unknown]
